FAERS Safety Report 5935492-X (Version None)
Quarter: 2008Q4

REPORT INFORMATION
  Report Type: 
  Country: None (occurrence: None)
  Receive Date: 20081030
  Receipt Date: 20081002
  Transmission Date: 20090506
  Serious: No
  Sender: FDA-Public Use
  Company Number: US-BAYER-200810622BCC

PATIENT
  Age: 57 Year
  Sex: Female
  Weight: 65 kg

DRUGS (1)
  1. ALEVE COLD AND SINUS [Suspect]
     Indication: INFLUENZA
     Route: 048
     Dates: start: 20080101

REACTIONS (2)
  - INFLUENZA LIKE ILLNESS [None]
  - INITIAL INSOMNIA [None]
